FAERS Safety Report 22828782 (Version 9)
Quarter: 2025Q3

REPORT INFORMATION
  Report Type: Report from Study
  Country: US (occurrence: US)
  Receive Date: 20230816
  Receipt Date: 20250714
  Transmission Date: 20251021
  Serious: Yes (Other)
  Sender: TAKEDA
  Company Number: US-TAKEDA-2023TUS059307

PATIENT
  Age: 62 Year
  Sex: Female
  Weight: 82 kg

DRUGS (39)
  1. TEDUGLUTIDE [Suspect]
     Active Substance: TEDUGLUTIDE
     Indication: Short-bowel syndrome
     Dosage: 3.5 MILLIGRAM, QD
  2. TEDUGLUTIDE [Suspect]
     Active Substance: TEDUGLUTIDE
     Dosage: 3.5 MILLIGRAM, QD
  3. TEDUGLUTIDE [Suspect]
     Active Substance: TEDUGLUTIDE
     Dosage: 3.5 MILLIGRAM, QD
  4. TEDUGLUTIDE [Suspect]
     Active Substance: TEDUGLUTIDE
     Dosage: 3.5 MILLIGRAM, QD
  5. TEDUGLUTIDE [Suspect]
     Active Substance: TEDUGLUTIDE
     Dosage: 3.5 MILLIGRAM, QD
  6. TEDUGLUTIDE [Suspect]
     Active Substance: TEDUGLUTIDE
     Dosage: 3.5 MILLIGRAM, QD
  7. TEDUGLUTIDE [Suspect]
     Active Substance: TEDUGLUTIDE
     Dosage: 3.5 MILLIGRAM, QD
  8. TEDUGLUTIDE [Suspect]
     Active Substance: TEDUGLUTIDE
     Dosage: 3.5 MILLIGRAM, QD
  9. TEDUGLUTIDE [Suspect]
     Active Substance: TEDUGLUTIDE
     Dosage: 4.29 MILLIGRAM, QD
  10. EPINEPHRINE [Concomitant]
     Active Substance: EPINEPHRINE
  11. QUETIAPINE FUMARATE [Concomitant]
     Active Substance: QUETIAPINE FUMARATE
  12. KLOR-CON M20 [Concomitant]
     Active Substance: POTASSIUM CHLORIDE
  13. METOPROLOL SUCCINATE [Concomitant]
     Active Substance: METOPROLOL SUCCINATE
  14. PANTOPRAZOLE SODIUM [Concomitant]
     Active Substance: PANTOPRAZOLE SODIUM
  15. DRISDOL [Concomitant]
     Active Substance: ERGOCALCIFEROL
  16. INVEGA TRINZA [Concomitant]
     Active Substance: PALIPERIDONE PALMITATE
  17. ONDANSETRON [Concomitant]
     Active Substance: ONDANSETRON
  18. PHENYTOIN SODIUM [Concomitant]
     Active Substance: PHENYTOIN SODIUM
  19. FLUTICASONE PROPIONATE [Concomitant]
     Active Substance: FLUTICASONE PROPIONATE
  20. LEVETIRACETAM [Concomitant]
     Active Substance: LEVETIRACETAM
  21. HYOSCYAMINE SULFATE [Concomitant]
     Active Substance: HYOSCYAMINE SULFATE
  22. MAGNESIUM [Concomitant]
     Active Substance: MAGNESIUM
  23. ELIQUIS [Concomitant]
     Active Substance: APIXABAN
  24. LOMOTIL [Concomitant]
     Active Substance: ATROPINE SULFATE\DIPHENOXYLATE HYDROCHLORIDE
  25. ALBUTEROL SULFATE [Concomitant]
     Active Substance: ALBUTEROL SULFATE
  26. TUMS [Concomitant]
     Active Substance: CALCIUM CARBONATE
  27. ALPRAZOLAM [Concomitant]
     Active Substance: ALPRAZOLAM
  28. TYLENOL EXTRA STRENGTH [Concomitant]
     Active Substance: ACETAMINOPHEN
  29. CALCIUM CARBONATE\CHOLECALCIFEROL [Concomitant]
     Active Substance: CALCIUM CARBONATE\CHOLECALCIFEROL
  30. DAYVIGO [Concomitant]
     Active Substance: LEMBOREXANT
  31. CLONAZEPAM [Concomitant]
     Active Substance: CLONAZEPAM
  32. TRAZODONE HCL [Concomitant]
     Active Substance: TRAZODONE HYDROCHLORIDE
  33. OMEPRAZOLE [Concomitant]
     Active Substance: OMEPRAZOLE
  34. ALBUTEROL SULFATE [Concomitant]
     Active Substance: ALBUTEROL SULFATE
  35. DULOXETINE HYDROCHLORIDE [Concomitant]
     Active Substance: DULOXETINE HYDROCHLORIDE
  36. CAPLYTA [Concomitant]
     Active Substance: LUMATEPERONE
  37. PHENYTOIN [Concomitant]
     Active Substance: PHENYTOIN
  38. FOLIC ACID [Concomitant]
     Active Substance: FOLIC ACID
  39. METHADONE [Concomitant]
     Active Substance: METHADONE HYDROCHLORIDE

REACTIONS (14)
  - Pelvic fracture [Not Recovered/Not Resolved]
  - Weight increased [Not Recovered/Not Resolved]
  - Fall [Unknown]
  - Diarrhoea [Not Recovered/Not Resolved]
  - Foot fracture [Unknown]
  - Gait disturbance [Unknown]
  - Scar [Unknown]
  - Infusion site pain [Unknown]
  - Joint injury [Unknown]
  - Depression [Unknown]
  - Product dose omission issue [Unknown]
  - Weight decreased [Unknown]
  - Appetite disorder [Recovering/Resolving]
  - Nausea [Unknown]

NARRATIVE: CASE EVENT DATE: 20240501
